FAERS Safety Report 4713193-3 (Version None)
Quarter: 2005Q3

REPORT INFORMATION
  Report Type: 
  Country: None (occurrence: None)
  Receive Date: 20050713
  Receipt Date: 20050112
  Transmission Date: 20060218
  Serious: Yes (Life-Threatening, Hospitalization, Disabling)
  Sender: FDA-Public Use
  Company Number: US-MERCK-0501USA01900

PATIENT
  Age: 51 Year
  Sex: Male
  Weight: 168 kg

DRUGS (10)
  1. VIOXX [Suspect]
     Indication: ARTHRALGIA
     Route: 048
     Dates: start: 20020827, end: 20020907
  2. VIOXX [Suspect]
     Route: 048
     Dates: start: 20021130, end: 20021214
  3. VIOXX [Suspect]
     Indication: INFLAMMATION
     Route: 048
     Dates: start: 20020827, end: 20020907
  4. VIOXX [Suspect]
     Route: 048
     Dates: start: 20021130, end: 20021214
  5. ALLOPURINOL MSD [Concomitant]
     Route: 048
  6. ACCUPRIL [Concomitant]
     Route: 065
     Dates: start: 20001023
  7. COUMADIN [Concomitant]
     Route: 065
     Dates: start: 19900801
  8. GLUCOVANCE [Concomitant]
     Route: 065
  9. ACTOS [Concomitant]
     Route: 065
  10. ZITHROMAX [Concomitant]
     Route: 065

REACTIONS (9)
  - BACK DISORDER [None]
  - CEREBROVASCULAR ACCIDENT [None]
  - DYSPEPSIA [None]
  - EMOTIONAL DISTRESS [None]
  - GOUT [None]
  - HEADACHE [None]
  - IMPAIRED WORK ABILITY [None]
  - LOSS OF CONSCIOUSNESS [None]
  - THROMBOSIS [None]
